FAERS Safety Report 6509447-0 (Version None)
Quarter: 2009Q4

REPORT INFORMATION
  Report Type: 
  Country: None (occurrence: None)
  Receive Date: 20091222
  Receipt Date: 20091216
  Transmission Date: 20100525
  Serious: Yes (Death, Other)
  Sender: FDA-Public Use
  Company Number: FR-TYCO HEALTHCARE/MALLINCKRODT-T200902268

PATIENT
  Age: 58 Year
  Sex: Female

DRUGS (4)
  1. SODIUM IODIDE I 131 [Suspect]
     Indication: RADIOACTIVE IODINE THERAPY
     Dosage: 3.7 GBQ OR 100 MCI
  2. SODIUM IODIDE I 131 [Suspect]
     Dosage: UNK, ABLATIVE DOSE
  3. SODIUM IODIDE I 131 [Suspect]
     Dosage: UNK, ABLATIVE DOSE
  4. SODIUM IODIDE I 131 [Suspect]
     Dosage: UNK, ABLATIVE DOSE

REACTIONS (2)
  - DISEASE PROGRESSION [None]
  - SUBARACHNOID HAEMORRHAGE [None]
